FAERS Safety Report 12202906 (Version 2)
Quarter: 2016Q2

REPORT INFORMATION
  Report Type: Report from Study
  Country: CA (occurrence: CA)
  Receive Date: 20160323
  Receipt Date: 20160418
  Transmission Date: 20160815
  Serious: Yes (Life-Threatening, Other)
  Sender: FDA-Public Use
  Company Number: CA-ROCHE-1714063

PATIENT
  Age: 53 Year
  Sex: Female

DRUGS (4)
  1. XOLAIR [Suspect]
     Active Substance: OMALIZUMAB
     Route: 058
     Dates: start: 20160215
  2. XOLAIR [Suspect]
     Active Substance: OMALIZUMAB
     Route: 058
     Dates: start: 20160111
  3. XOLAIR [Suspect]
     Active Substance: OMALIZUMAB
     Route: 058
     Dates: start: 20160316
  4. XOLAIR [Suspect]
     Active Substance: OMALIZUMAB
     Indication: CHRONIC SPONTANEOUS URTICARIA
     Route: 058
     Dates: start: 20151214

REACTIONS (11)
  - Feeling hot [Unknown]
  - Erythema [Unknown]
  - Insomnia [Unknown]
  - Nervousness [Unknown]
  - Presyncope [Unknown]
  - Nausea [Unknown]
  - Urticaria [Unknown]
  - Apparent death [Unknown]
  - Pruritus [Unknown]
  - Skin discolouration [Unknown]
  - Blood pressure systolic increased [Unknown]

NARRATIVE: CASE EVENT DATE: 201601
